FAERS Safety Report 19887576 (Version 3)
Quarter: 2022Q1

REPORT INFORMATION
  Report Type: Report from Study
  Country: FR (occurrence: None)
  Receive Date: 20210928
  Receipt Date: 20220127
  Transmission Date: 20220423
  Serious: Yes (Hospitalization)
  Sender: FDA-Public Use
  Company Number: FR-ROCHE-2918240

PATIENT
  Age: 63 Year
  Sex: Male
  Weight: 114 kg

DRUGS (2)
  1. ATEZOLIZUMAB [Suspect]
     Active Substance: ATEZOLIZUMAB
     Indication: Bladder cancer
     Dosage: MOST RECENT DOSE (1200 MG): 04/JUN/2021
     Route: 041
     Dates: start: 20200925
  2. BCG VACCINE [Suspect]
     Active Substance: BCG VACCINE
     Indication: Bladder cancer
     Dosage: MOST RECENT DOSE (50 ML): 26/MAR/2021
     Route: 065
     Dates: start: 20200925

REACTIONS (2)
  - Pyrexia [Not Recovered/Not Resolved]
  - Erysipelas [Recovered/Resolved]

NARRATIVE: CASE EVENT DATE: 20210612
